FAERS Safety Report 4982534-4 (Version None)
Quarter: 2006Q2

REPORT INFORMATION
  Report Type: 
  Country: None (occurrence: None)
  Receive Date: 20060421
  Receipt Date: 20060420
  Transmission Date: 20061013
  Serious: Yes (Hospitalization)
  Sender: FDA-Public Use
  Company Number: 007168

PATIENT
  Age: 14 Year
  Sex: Male
  Weight: 59 kg

DRUGS (1)
  1. CLARAVIS [Suspect]
     Indication: ACNE
     Dosage: 1 CAPS., BID,ORAL
     Route: 048
     Dates: start: 20051019, end: 20060205

REACTIONS (4)
  - ACCIDENT [None]
  - COMPARTMENT SYNDROME [None]
  - INJURY [None]
  - LIMB INJURY [None]
